FAERS Safety Report 14216304 (Version 2)
Quarter: 2017Q4

REPORT INFORMATION
  Report Type: Spontaneous
  Country: IT (occurrence: IT)
  Receive Date: 20171122
  Receipt Date: 20171206
  Transmission Date: 20180321
  Serious: Yes (Hospitalization)
  Sender: FDA-Public Use
  Company Number: PHHY2017IT171389

PATIENT
  Age: 69 Year
  Sex: Male
  Weight: 75 kg

DRUGS (4)
  1. VECTIBIX [Suspect]
     Active Substance: PANITUMUMAB
     Indication: COLORECTAL CANCER METASTATIC
     Dosage: 400 MG, CYCLIC
     Route: 042
     Dates: start: 20160705
  2. OXALIPLATIN. [Suspect]
     Active Substance: OXALIPLATIN
     Indication: COLORECTAL CANCER METASTATIC
     Dosage: 1 DF, CYCLIC
     Route: 042
     Dates: start: 20160705
  3. CALCIUM FOLINATE [Suspect]
     Active Substance: LEUCOVORIN CALCIUM
     Indication: COLORECTAL CANCER METASTATIC
     Dosage: 1 DF, CYCLIC
     Route: 042
     Dates: start: 20160705
  4. FLUOROURACIL EBEWE [Suspect]
     Active Substance: FLUOROURACIL
     Indication: COLORECTAL CANCER METASTATIC
     Dosage: 1 DF, CYCLIC
     Route: 042
     Dates: start: 20160705

REACTIONS (6)
  - Fatigue [Unknown]
  - Rash pustular [Unknown]
  - Palmar-plantar erythrodysaesthesia syndrome [Unknown]
  - Conjunctivitis [Unknown]
  - Paronychia [Unknown]
  - Jaundice [Unknown]

NARRATIVE: CASE EVENT DATE: 20170502
